FAERS Safety Report 8406057-5 (Version None)
Quarter: 2012Q2

REPORT INFORMATION
  Report Type: 
  Country: None (occurrence: None)
  Receive Date: 20120604
  Receipt Date: 20120529
  Transmission Date: 20120825
  Serious: Yes (Hospitalization, Other)
  Sender: FDA-Public Use
  Company Number: US-BAYER-200941485NA

PATIENT
  Age: 29 Year
  Sex: Female
  Weight: 63.636 kg

DRUGS (11)
  1. YASMIN [Suspect]
     Indication: CONTRACEPTION
     Dosage: UNK UNK, QD
     Route: 048
     Dates: start: 20050513, end: 20080121
  2. FIORICET [Concomitant]
     Indication: HEADACHE
     Route: 048
     Dates: start: 20091116
  3. ACETAMINOPHEN [Concomitant]
     Indication: HEADACHE
     Route: 048
  4. COLACE [Concomitant]
     Dates: start: 20090301
  5. IMITREX [Concomitant]
     Indication: MIGRAINE
     Dates: start: 20080301
  6. FLU VACCINATION [Concomitant]
     Indication: ANTIVIRAL PROPHYLAXIS
     Dates: start: 20090101, end: 20090101
  7. IBUPROFEN [Concomitant]
     Dates: start: 20051020
  8. VALIUM [Concomitant]
     Dates: start: 20090301
  9. COLACE [Concomitant]
     Dosage: UNK
     Dates: start: 20080101
  10. IMITREX [Concomitant]
     Indication: HEADACHE
  11. REGLAN [Concomitant]
     Indication: MIGRAINE
     Dates: start: 20080301

REACTIONS (7)
  - DYSPNOEA [None]
  - OEDEMA PERIPHERAL [None]
  - HEPATIC MASS [None]
  - DEEP VEIN THROMBOSIS [None]
  - ABORTION [None]
  - PULMONARY EMBOLISM [None]
  - PAIN [None]
